FAERS Safety Report 8495633-X (Version None)
Quarter: 2012Q3

REPORT INFORMATION
  Report Type: 
  Country: None (occurrence: None)
  Receive Date: 20120709
  Receipt Date: 20120705
  Transmission Date: 20120928
  Serious: Yes (Other)
  Sender: FDA-Public Use
  Company Number: US-ROCHE-1040750

PATIENT
  Sex: Female

DRUGS (2)
  1. ACTONEL [Suspect]
     Indication: PRODUCT USED FOR UNKNOWN INDICATION
     Dates: end: 20100908
  2. BONIVA [Suspect]
     Indication: OSTEOPOROSIS

REACTIONS (4)
  - OSTEONECROSIS OF JAW [None]
  - HUMERUS FRACTURE [None]
  - ANXIETY [None]
  - ARTHRALGIA [None]
